FAERS Safety Report 14729108 (Version 1)
Quarter: 2018Q2

REPORT INFORMATION
  Report Type: Spontaneous
  Country: US (occurrence: US)
  Receive Date: 20180402
  Receipt Date: 20180402
  Transmission Date: 20180711
  Serious: No
  Sender: FDA-Public Use
  Company Number: None

PATIENT
  Age: 31 Year
  Sex: Female
  Weight: 56.25 kg

DRUGS (1)
  1. FLUOXETINE [Suspect]
     Active Substance: FLUOXETINE HYDROCHLORIDE
     Indication: ANXIETY
     Dosage: ?          QUANTITY:30 CAPSULE(S);?
     Route: 048
     Dates: start: 20180330, end: 20180401

REACTIONS (8)
  - Vomiting [None]
  - Headache [None]
  - Nightmare [None]
  - Diarrhoea [None]
  - Pyrexia [None]
  - Feeling jittery [None]
  - Ear discomfort [None]
  - Product substitution issue [None]

NARRATIVE: CASE EVENT DATE: 20180331
